FAERS Safety Report 4317921-0 (Version None)
Quarter: 2004Q1

REPORT INFORMATION
  Report Type: 
  Country: None (occurrence: None)
  Receive Date: 20040316
  Receipt Date: 20040305
  Transmission Date: 20041129
  Serious: Yes (Hospitalization)
  Sender: FDA-Public Use
  Company Number: US-ROCHE-361047

PATIENT
  Age: 68 Year
  Sex: Female
  Weight: 40.6 kg

DRUGS (4)
  1. TAMIFLU [Suspect]
     Route: 048
     Dates: start: 20040109, end: 20040113
  2. ZOLOFT [Concomitant]
     Dosage: DOSAGE REPORTED AS: ONE AT NIGHT
     Route: 048
  3. ASPIRIN [Concomitant]
     Route: 048
  4. THERAGRAN [Concomitant]
     Dosage: DOSAGE REPORTED AS: ONE DAILY.

REACTIONS (5)
  - ARTHRALGIA [None]
  - DIFFICULTY IN WALKING [None]
  - ERYTHEMA MULTIFORME [None]
  - PETECHIAE [None]
  - SWELLING [None]
